FAERS Safety Report 20598480 (Version 2)
Quarter: 2022Q1

REPORT INFORMATION
  Report Type: Spontaneous
  Country: US (occurrence: None)
  Receive Date: 20220315
  Receipt Date: 20220315
  Transmission Date: 20220423
  Serious: No
  Sender: FDA-Public Use
  Company Number: US-ROCHE-2970840

PATIENT
  Age: 35 Year
  Sex: Female
  Weight: 81.720 kg

DRUGS (1)
  1. XOLAIR [Suspect]
     Active Substance: OMALIZUMAB
     Indication: Asthma
     Dosage: TWO 150MG DOSES AND THEN JUST A SINGLE DOSE OF 75MG
     Route: 058
     Dates: start: 202107

REACTIONS (3)
  - Rash [Not Recovered/Not Resolved]
  - Mass [Recovered/Resolved]
  - Infection [Not Recovered/Not Resolved]

NARRATIVE: CASE EVENT DATE: 20211101
